FAERS Safety Report 8123862 (Version 7)
Quarter: 2014Q1

REPORT INFORMATION
  Report Type: Spontaneous
  Country: JP (occurrence: JP)
  Receive Date: 20110907
  Receipt Date: 20140107
  Transmission Date: 20141002
  Serious: Yes (Hospitalization, Disabling, Other)
  Sender: FDA-Public Use
  Company Number: JP-PFIZER INC-2011207856

PATIENT
  Age: 79 Year
  Sex: Male
  Weight: 56 kg

DRUGS (8)
  1. CELECOX [Suspect]
     Indication: BACK PAIN
     Dosage: UNK
     Route: 048
     Dates: start: 20100813, end: 20100907
  2. CELECOX [Suspect]
     Indication: PAIN
  3. HARNAL [Concomitant]
     Indication: BENIGN PROSTATIC HYPERPLASIA
     Dosage: UNK
     Route: 065
  4. BAYASPIRIN [Concomitant]
     Indication: CEREBRAL INFARCTION
     Dosage: UNK
     Route: 048
  5. CERNILTON [Concomitant]
     Indication: BENIGN PROSTATIC HYPERPLASIA
     Dosage: UNK
     Route: 065
  6. FERROMIA [Concomitant]
     Indication: ANAEMIA
     Dosage: UNK
     Route: 065
  7. LASIX [Concomitant]
     Indication: OEDEMA
     Dosage: UNK
     Route: 065
  8. PETROLEUM [Concomitant]
     Indication: ECZEMA
     Dosage: UNK
     Route: 065

REACTIONS (2)
  - Drug reaction with eosinophilia and systemic symptoms [Recovered/Resolved]
  - Human herpesvirus 6 infection [Recovered/Resolved]
